FAERS Safety Report 4980954-5 (Version None)
Quarter: 2006Q2

REPORT INFORMATION
  Report Type: 
  Country: None (occurrence: None)
  Receive Date: 20060418
  Receipt Date: 20060331
  Transmission Date: 20061013
  Serious: No
  Sender: FDA-Public Use
  Company Number: US200602004343

PATIENT
  Age: 83 Year
  Sex: Female

DRUGS (4)
  1. FORTEO [Suspect]
     Indication: OSTEOPOROSIS
     Dosage: 20  UG/DAY
     Dates: start: 20050201
  2. FORTEO [Concomitant]
  3. FORTEO [Concomitant]
  4. NEURONTIN [Concomitant]

REACTIONS (2)
  - CONDITION AGGRAVATED [None]
  - PAIN [None]
